FAERS Safety Report 23704203 (Version 2)
Quarter: 2024Q2

REPORT INFORMATION
  Report Type: Report from Study
  Country: CA (occurrence: CA)
  Receive Date: 20240404
  Receipt Date: 20240605
  Transmission Date: 20240715
  Serious: Yes (Other)
  Sender: FDA-Public Use
  Company Number: CA-Merck Healthcare KGaA-2024016878

PATIENT
  Age: 10 Month
  Sex: Female

DRUGS (4)
  1. SAIZEN [Suspect]
     Active Substance: SOMATROPIN
     Indication: Growth hormone deficiency
     Route: 058
     Dates: start: 20230327, end: 20231005
  2. SAIZEN [Suspect]
     Active Substance: SOMATROPIN
     Indication: Septo-optic dysplasia
  3. DIAZOXIDE [Concomitant]
     Active Substance: DIAZOXIDE
     Indication: Product used for unknown indication
  4. HYDROCHLOROTHIAZIDE [Concomitant]
     Active Substance: HYDROCHLOROTHIAZIDE
     Indication: Product used for unknown indication

REACTIONS (2)
  - Neoplasm [Unknown]
  - Retinoblastoma [Unknown]

NARRATIVE: CASE EVENT DATE: 20230928
